FAERS Safety Report 21012330 (Version 10)
Quarter: 2025Q3

REPORT INFORMATION
  Report Type: Report from Study
  Country: IN (occurrence: IN)
  Receive Date: 20220627
  Receipt Date: 20250819
  Transmission Date: 20251020
  Serious: Yes (Other)
  Sender: INCYTE
  Company Number: IN-002147023-NVSC2022IN032861

PATIENT
  Age: 76 Year

DRUGS (8)
  1. RUXOLITINIB [Suspect]
     Active Substance: RUXOLITINIB
     Indication: Polycythaemia vera
     Dosage: 15 MG, BID
  2. RUXOLITINIB [Suspect]
     Active Substance: RUXOLITINIB
     Indication: Primary myelofibrosis
     Dosage: 5 MG, BID
  3. RUXOLITINIB [Suspect]
     Active Substance: RUXOLITINIB
     Dosage: 10 MG, BID
  4. RUXOLITINIB [Suspect]
     Active Substance: RUXOLITINIB
  5. RUXOLITINIB [Suspect]
     Active Substance: RUXOLITINIB
     Dosage: 5 MG, BID
  6. RUXOLITINIB [Suspect]
     Active Substance: RUXOLITINIB
     Dosage: 5 MG, BID
  7. RUXOLITINIB [Suspect]
     Active Substance: RUXOLITINIB
     Dosage: 5 MG, BID (TWICE A DAY)
  8. RUXOLITINIB [Suspect]
     Active Substance: RUXOLITINIB
     Dosage: 5 MG, BID

REACTIONS (15)
  - Chronic kidney disease [Unknown]
  - Oedema peripheral [Unknown]
  - Haemoglobin abnormal [Unknown]
  - Hypertension [Unknown]
  - Haemoglobin decreased [Unknown]
  - Mean cell haemoglobin concentration abnormal [Unknown]
  - Platelet count abnormal [Unknown]
  - Cerebrovascular accident [Unknown]
  - Arterial thrombosis [Unknown]
  - Renal impairment [Recovered/Resolved]
  - Renal impairment [Unknown]
  - Splenomegaly [Unknown]
  - Nail disorder [Unknown]
  - Product use issue [Unknown]
  - Vitamin D decreased [Unknown]
